FAERS Safety Report 6060093-5 (Version None)
Quarter: 2009Q1

REPORT INFORMATION
  Report Type: 
  Country: None (occurrence: None)
  Receive Date: 20090127
  Receipt Date: 20081001
  Transmission Date: 20090719
  Serious: No
  Sender: FDA-Public Use
  Company Number: 2008-184658-NL

PATIENT
  Sex: Male

DRUGS (1)
  1. MIRTAZAPINE [Suspect]
     Indication: DEPRESSION
     Dosage: DF
     Route: 048
     Dates: start: 20050101, end: 20070101

REACTIONS (3)
  - CAUSTIC INJURY [None]
  - DENTAL CARIES [None]
  - ENAMEL ANOMALY [None]
